FAERS Safety Report 17986391 (Version 2)
Quarter: 2020Q3

REPORT INFORMATION
  Report Type: Spontaneous
  Country: JP (occurrence: JP)
  Receive Date: 20200706
  Receipt Date: 20200812
  Transmission Date: 20201103
  Serious: Yes (Death, Other)
  Sender: FDA-Public Use
  Company Number: JP-SEATTLE GENETICS-2020SGN02133

PATIENT
  Age: 7 Decade
  Sex: Female

DRUGS (1)
  1. ADCETRIS [Suspect]
     Active Substance: BRENTUXIMAB VEDOTIN
     Indication: LYMPHOMA
     Dosage: UNK
     Route: 042
     Dates: start: 20180317

REACTIONS (4)
  - Condition aggravated [Unknown]
  - Off label use [Unknown]
  - Lymphoma [Fatal]
  - Lymphoma [Unknown]

NARRATIVE: CASE EVENT DATE: 20180317
